FAERS Safety Report 8234090-5 (Version None)
Quarter: 2012Q1

REPORT INFORMATION
  Report Type: 
  Country: None (occurrence: None)
  Receive Date: 20120326
  Receipt Date: 20120326
  Transmission Date: 20120608
  Serious: Yes (Hospitalization)
  Sender: FDA-Public Use
  Company Number: None

PATIENT
  Sex: Female
  Weight: 57.152 kg

DRUGS (1)
  1. ACTONEL [Suspect]
     Indication: OSTEOPENIA
     Dosage: 1 TABLET
     Route: 048
     Dates: start: 20120316, end: 20120316

REACTIONS (8)
  - ERYTHEMA [None]
  - DIZZINESS [None]
  - PAIN [None]
  - DYSPNOEA [None]
  - JOINT SWELLING [None]
  - ABDOMINAL PAIN UPPER [None]
  - FALL [None]
  - OEDEMA PERIPHERAL [None]
